FAERS Safety Report 25425821 (Version 1)
Quarter: 2025Q2

REPORT INFORMATION
  Report Type: Report from Study
  Country: US (occurrence: US)
  Receive Date: 20250611
  Receipt Date: 20250611
  Transmission Date: 20250716
  Serious: Yes (Other)
  Sender: MALLINCKRODT
  Company Number: US-MALLINCKRODT-MNK202503378

PATIENT
  Age: 74 Year
  Sex: Male

DRUGS (1)
  1. CORTICOTROPIN [Suspect]
     Active Substance: CORTICOTROPIN
     Indication: Nephritic syndrome
     Dates: start: 20250423, end: 20250505

REACTIONS (4)
  - Atrial fibrillation [Unknown]
  - Nocturia [Unknown]
  - Gout [Unknown]
  - Irritability [Unknown]

NARRATIVE: CASE EVENT DATE: 20250101
